FAERS Safety Report 8856853 (Version 1)
Quarter: 2012Q4

REPORT INFORMATION
  Report Type: Spontaneous
  Country: US (occurrence: None)
  Receive Date: 20121023
  Receipt Date: 20121023
  Transmission Date: 20130627
  Serious: Yes (Hospitalization)
  Sender: FDA-Public Use
  Company Number: None

PATIENT
  Age: 42 Year
  Sex: Male
  Weight: 99.79 kg

DRUGS (1)
  1. VICTOZA [Suspect]
     Indication: DIABETES
     Dates: start: 20110417, end: 20120818

REACTIONS (2)
  - Cerebral cyst [None]
  - Thyroid cyst [None]
